FAERS Safety Report 4592433-8 (Version None)
Quarter: 2005Q1

REPORT INFORMATION
  Report Type: 
  Country: None (occurrence: None)
  Receive Date: 20050228
  Receipt Date: 20050125
  Transmission Date: 20050727
  Serious: No
  Sender: FDA-Public Use
  Company Number: US-BRISTOL-MYERS SQUIBB COMPANY-12837753

PATIENT
  Age: 43 Year
  Sex: Male
  Weight: 77 kg

DRUGS (3)
  1. ABILIFY [Suspect]
     Indication: SCHIZOAFFECTIVE DISORDER
     Dosage: INCREASED TO 45 MG/DAY
     Route: 048
  2. LORAZEPAM [Concomitant]
  3. LAMICTAL [Concomitant]

REACTIONS (2)
  - HALLUCINATION, AUDITORY [None]
  - PRESCRIBED OVERDOSE [None]
